FAERS Safety Report 6235115-9 (Version None)
Quarter: 2009Q2

REPORT INFORMATION
  Report Type: 
  Country: None (occurrence: None)
  Receive Date: 20090618
  Receipt Date: 20090608
  Transmission Date: 20091009
  Serious: Yes (Hospitalization)
  Sender: FDA-Public Use
  Company Number: GB-ABBOTT-09P-167-0579115-00

PATIENT
  Sex: Female

DRUGS (2)
  1. HUMIRA [Suspect]
     Indication: RHEUMATOID ARTHRITIS
     Route: 058
     Dates: start: 20080701
  2. HUMIRA [Suspect]
     Route: 058

REACTIONS (4)
  - BRAIN NEOPLASM [None]
  - FEELING HOT [None]
  - SINUS DISORDER [None]
  - SINUSITIS [None]
